FAERS Safety Report 6521947-6 (Version None)
Quarter: 2009Q4

REPORT INFORMATION
  Report Type: 
  Country: None (occurrence: None)
  Receive Date: 20091230
  Receipt Date: 20091221
  Transmission Date: 20100525
  Serious: Yes (Death)
  Sender: FDA-Public Use
  Company Number: IT-TEVA-218911ISR

PATIENT
  Sex: Male

DRUGS (4)
  1. ETOPOSIDE [Suspect]
     Indication: LYMPHOMA
     Route: 042
     Dates: start: 20091017, end: 20091116
  2. IFOSFAMIDE [Suspect]
     Indication: LYMPHOMA
     Route: 042
     Dates: start: 20091017, end: 20091116
  3. EPIRUBICIN HYDROCHLORIDE [Suspect]
     Indication: LYMPHOMA
     Route: 042
     Dates: start: 20091017, end: 20091116
  4. ALLOPURINOL [Concomitant]
     Route: 048
     Dates: start: 20091112, end: 20091121

REACTIONS (2)
  - RENAL FAILURE ACUTE [None]
  - RHABDOMYOLYSIS [None]
